FAERS Safety Report 5287772-1 (Version None)
Quarter: 2007Q2

REPORT INFORMATION
  Report Type: 
  Country: None (occurrence: None)
  Receive Date: 20070405
  Receipt Date: 20070328
  Transmission Date: 20071010
  Serious: Yes (Hospitalization)
  Sender: FDA-Public Use
  Company Number: HQWYE956128MAR07

PATIENT
  Age: 66 Year
  Sex: Male

DRUGS (5)
  1. AVLOCARDYL LP [Suspect]
     Route: 048
  2. FLUOXETINE [Suspect]
     Dosage: UNSPECIFIED
     Route: 048
  3. TERCIAN [Suspect]
     Route: 048
  4. STILNOX [Suspect]
     Dosage: ONCE DAILY
     Route: 048
  5. TEMESTA [Suspect]
     Route: 048

REACTIONS (3)
  - BLOOD GLUCOSE INCREASED [None]
  - FALL [None]
  - PARKINSONISM [None]
